FAERS Safety Report 8078492-9 (Version None)
Quarter: 2012Q1

REPORT INFORMATION
  Report Type: 
  Country: None (occurrence: None)
  Receive Date: 20120123
  Receipt Date: 20120114
  Transmission Date: 20120608
  Serious: No
  Sender: FDA-Public Use
  Company Number: 2012-00011

PATIENT
  Age: 62 Year
  Sex: Female
  Weight: 68.0396 kg

DRUGS (3)
  1. VENTOLIN [Concomitant]
  2. ZICAM INTENSE SINUS RELIEF NASAL GEL [Suspect]
     Indication: NASOPHARYNGITIS
     Dosage: INSERTED NASALLY TWICE DAILY
     Route: 045
     Dates: start: 20120111, end: 20120113
  3. ADVAIR DISKUS 100/50 [Concomitant]

REACTIONS (1)
  - ANOSMIA [None]
